FAERS Safety Report 11987792 (Version 1)
Quarter: 2016Q1

REPORT INFORMATION
  Report Type: Spontaneous
  Country: US (occurrence: US)
  Receive Date: 20160202
  Receipt Date: 20160202
  Transmission Date: 20160526
  Serious: Yes (Hospitalization, Other)
  Sender: FDA-Public Use
  Company Number: US-JNJFOC-20151201969

PATIENT
  Age: 84 Year
  Sex: Male
  Weight: 53 kg

DRUGS (3)
  1. AMBIEN [Concomitant]
     Active Substance: ZOLPIDEM TARTRATE
     Dosage: EVERY BEDTIME
     Route: 048
     Dates: start: 20140331
  2. AVODART [Concomitant]
     Active Substance: DUTASTERIDE
  3. IMBRUVICA [Suspect]
     Active Substance: IBRUTINIB
     Indication: WALDENSTROM^S MACROGLOBULINAEMIA
     Dates: start: 20151027, end: 20151124

REACTIONS (4)
  - Urinary tract infection [Unknown]
  - Acute monocytic leukaemia [Not Recovered/Not Resolved]
  - White blood cell disorder [Unknown]
  - Asthenia [Unknown]

NARRATIVE: CASE EVENT DATE: 20151120
